FAERS Safety Report 6224832-2 (Version None)
Quarter: 2009Q2

REPORT INFORMATION
  Report Type: 
  Country: None (occurrence: None)
  Receive Date: 20090612
  Receipt Date: 20090406
  Transmission Date: 20091009
  Serious: Yes (Hospitalization)
  Sender: FDA-Public Use
  Company Number: US-ABBOTT-09P-163-0565578-00

PATIENT
  Sex: Female
  Weight: 90.8 kg

DRUGS (3)
  1. HUMIRA [Suspect]
     Indication: PSORIASIS
     Route: 058
     Dates: start: 20090227, end: 20090318
  2. METHOTREXATE [Concomitant]
     Indication: PSORIASIS
     Dosage: 2.5MG
     Route: 048
  3. METHOTREXATE [Concomitant]
     Dates: start: 20090320

REACTIONS (2)
  - CELLULITIS STREPTOCOCCAL [None]
  - PSORIASIS [None]
